FAERS Safety Report 22112005 (Version 1)
Quarter: 2023Q1

REPORT INFORMATION
  Report Type: Report from Study
  Country: US (occurrence: US)
  Receive Date: 20230318
  Receipt Date: 20230318
  Transmission Date: 20230417
  Serious: Yes (Other)
  Sender: FDA-Public Use
  Company Number: US-ABBVIE-4260013

PATIENT
  Sex: Male
  Weight: 91 kg

DRUGS (2)
  1. CARBIDOPA\LEVODOPA [Suspect]
     Active Substance: CARBIDOPA\LEVODOPA
     Indication: Product used for unknown indication
     Route: 050
     Dates: start: 20210701
  2. CARBIDOPA\LEVODOPA [Suspect]
     Active Substance: CARBIDOPA\LEVODOPA

REACTIONS (6)
  - Hospice care [Unknown]
  - Headache [Unknown]
  - Sleep paralysis [Unknown]
  - Therapeutic product effect variable [Unknown]
  - Drug hypersensitivity [Unknown]
  - Central venous pressure abnormal [Unknown]
